FAERS Safety Report 8673340 (Version 3)
Quarter: 2013Q2

REPORT INFORMATION
  Report Type: Spontaneous
  Country: CA (occurrence: CA)
  Receive Date: 20120719
  Receipt Date: 20130415
  Transmission Date: 20140414
  Serious: Yes (Other)
  Sender: FDA-Public Use
  Company Number: CA-BAYER-2012-062502

PATIENT
  Sex: Female
  Weight: 95 kg

DRUGS (2)
  1. EXTAVIA [Suspect]
     Indication: RELAPSING-REMITTING MULTIPLE SCLEROSIS
     Dosage: 8 MIU, QOD
     Route: 058
     Dates: start: 20120514
  2. BETASERON [Suspect]
     Indication: RELAPSING-REMITTING MULTIPLE SCLEROSIS
     Dosage: 8 MIU, QOD
     Route: 058
     Dates: end: 201205

REACTIONS (9)
  - Fall [None]
  - Foot fracture [Recovering/Resolving]
  - Gait disturbance [None]
  - Retinal detachment [Recovering/Resolving]
  - Abnormal sensation in eye [None]
  - Memory impairment [None]
  - Arthritis [None]
  - Arthralgia [None]
  - Contusion [Recovering/Resolving]
